FAERS Safety Report 23245752 (Version 1)
Quarter: 2023Q4

REPORT INFORMATION
  Report Type: Spontaneous
  Country: US (occurrence: US)
  Receive Date: 20231130
  Receipt Date: 20231130
  Transmission Date: 20240109
  Serious: Yes (Hospitalization, Other)
  Sender: FDA-Public Use
  Company Number: US-OPELLA-2023OHG016035

PATIENT
  Age: 86 Year
  Sex: Female

DRUGS (1)
  1. GOLD BOND MEDICATED ORIGINAL STRENGTH BODY [Suspect]
     Active Substance: MENTHOL
     Indication: Product used for unknown indication

REACTIONS (3)
  - Lung neoplasm malignant [Unknown]
  - Metastatic neoplasm [Unknown]
  - Pleural effusion [Unknown]

NARRATIVE: CASE EVENT DATE: 20191102
